FAERS Safety Report 22538480 (Version 25)
Quarter: 2024Q4

REPORT INFORMATION
  Report Type: Spontaneous
  Country: DE (occurrence: DE)
  Receive Date: 20230609
  Receipt Date: 20241009
  Transmission Date: 20250114
  Serious: Yes (Other)
  Sender: ROCHE
  Company Number: None

PATIENT
  Age: 61 Year
  Sex: Female

DRUGS (9)
  1. VENETOCLAX [Suspect]
     Active Substance: VENETOCLAX
     Indication: Diffuse large B-cell lymphoma
     Route: 048
     Dates: start: 20220901, end: 20230605
  2. MABTHERA [Suspect]
     Active Substance: RITUXIMAB
     Indication: Diffuse large B-cell lymphoma
     Dosage: UNK, DRUG SEPARATE DOSAGE NUMBER:1 DOSE FORM PFT-22120
     Route: 065
     Dates: start: 20200401, end: 20200401
  3. PREDNISONE [Suspect]
     Active Substance: PREDNISONE
     Indication: Diffuse large B-cell lymphoma
     Dosage: DRUG SEPARATE DOSAGE NUMBER:1
     Route: 065
     Dates: start: 20200401, end: 20200401
  4. DOXORUBICIN HYDROCHLORIDE [Suspect]
     Active Substance: DOXORUBICIN HYDROCHLORIDE
     Indication: Diffuse large B-cell lymphoma
     Dosage: UNK, DRUG SEPARATE DOSAGE NUMBER:1
     Route: 065
     Dates: start: 20200401, end: 20200801
  5. IMBRUVICA [Suspect]
     Active Substance: IBRUTINIB
     Indication: Diffuse large B-cell lymphoma
     Route: 048
     Dates: start: 20220901, end: 20230605
  6. IMBRUVICA [Suspect]
     Active Substance: IBRUTINIB
     Route: 048
     Dates: start: 20210901, end: 20220901
  7. IMBRUVICA [Suspect]
     Active Substance: IBRUTINIB
     Dosage: FIRST ADMIN DATE SEP 2022
     Route: 048
     Dates: end: 20230506
  8. CYCLOPHOSPHAMIDE [Suspect]
     Active Substance: CYCLOPHOSPHAMIDE
     Indication: Diffuse large B-cell lymphoma
     Dosage: UNK, DRUG SEPARATE DOSAGE NUMBER:1
     Route: 065
     Dates: start: 20200401, end: 20200801
  9. VINCRISTINE SULFATE [Suspect]
     Active Substance: VINCRISTINE SULFATE
     Indication: Diffuse large B-cell lymphoma
     Dosage: UNK, DRUG SEPARATE DOSAGE NUMBER:1
     Route: 065
     Dates: start: 20200401, end: 20200801

REACTIONS (1)
  - Diffuse large B-cell lymphoma [Not Recovered/Not Resolved]
